FAERS Safety Report 5147934-0 (Version None)
Quarter: 2006Q4

REPORT INFORMATION
  Report Type: 
  Country: None (occurrence: None)
  Receive Date: 20061110
  Receipt Date: 20061102
  Transmission Date: 20070319
  Serious: Yes (Hospitalization)
  Sender: FDA-Public Use
  Company Number: US-ABBOTT-06P-163-0348909-00

PATIENT
  Sex: Female
  Weight: 65.83 kg

DRUGS (5)
  1. HUMIRA [Suspect]
     Indication: RHEUMATOID ARTHRITIS
     Route: 058
     Dates: start: 20040601
  2. HUMIRA [Suspect]
  3. ESTRADIOL INJ [Concomitant]
     Indication: HORMONE REPLACEMENT THERAPY
     Dosage: PATCH
     Route: 061
     Dates: start: 20041101
  4. CELECOXIB [Concomitant]
     Indication: RHEUMATOID ARTHRITIS
     Route: 048
     Dates: start: 20040101
  5. VALACYCLOVIR HCL [Concomitant]
     Indication: VIRAL INFECTION
     Route: 048
     Dates: start: 20041101

REACTIONS (6)
  - HERPES SIMPLEX [None]
  - INJECTION SITE NODULE [None]
  - INJECTION SITE PAIN [None]
  - PHARYNGOLARYNGEAL PAIN [None]
  - UTERINE LEIOMYOMA [None]
  - VIRAL INFECTION [None]
